FAERS Safety Report 22325661 (Version 1)
Quarter: 2023Q2

REPORT INFORMATION
  Report Type: Spontaneous
  Country: US (occurrence: None)
  Receive Date: 20230515
  Receipt Date: 20230515
  Transmission Date: 20230721
  Serious: Yes (Hospitalization)
  Sender: FDA-Public Use
  Company Number: None

PATIENT
  Age: 62 Year
  Sex: Male
  Weight: 108.4 kg

DRUGS (1)
  1. METHOXY POLYETHYLENE GLYCOL-EPOETIN BETA [Suspect]
     Active Substance: METHOXY POLYETHYLENE GLYCOL-EPOETIN BETA
     Indication: Anaemia
     Route: 042
     Dates: start: 20230425, end: 20230425

REACTIONS (5)
  - Unresponsive to stimuli [None]
  - Cyanosis [None]
  - Respiratory arrest [None]
  - Heart rate irregular [None]
  - Agonal respiration [None]

NARRATIVE: CASE EVENT DATE: 20230424
